FAERS Safety Report 17570320 (Version 1)
Quarter: 2020Q1

REPORT INFORMATION
  Report Type: Spontaneous
  Country: US (occurrence: US)
  Receive Date: 20200323
  Receipt Date: 20200323
  Transmission Date: 20200409
  Serious: Yes (Other)
  Sender: FDA-Public Use
  Company Number: NVSC2020US077809

PATIENT
  Sex: Female

DRUGS (1)
  1. TYKERB [Suspect]
     Active Substance: LAPATINIB DITOSYLATE
     Indication: BREAST CANCER FEMALE
     Dosage: 5 DF (1250 MG) (ON DAYS 1-21 OF A 28 DAY CYCLE)
     Route: 048

REACTIONS (2)
  - Brain cancer metastatic [Unknown]
  - Malaise [Unknown]
